FAERS Safety Report 11661753 (Version 1)
Quarter: 2015Q4

REPORT INFORMATION
  Report Type: Spontaneous
  Country: JP (occurrence: JP)
  Receive Date: 20151026
  Receipt Date: 20151026
  Transmission Date: 20160304
  Serious: Yes (Death, Other)
  Sender: FDA-Public Use
  Company Number: PHJP1994JP001016

PATIENT

DRUGS (2)
  1. VOLTAREN [Suspect]
     Active Substance: DICLOFENAC SODIUM
     Dosage: 12.5 MG, UNK
     Route: 065
     Dates: start: 19940107
  2. VOLTAREN [Suspect]
     Active Substance: DICLOFENAC SODIUM
     Indication: ARTHRALGIA
     Dosage: 12.5 MG, UNK
     Route: 065
     Dates: start: 19940105

REACTIONS (7)
  - Cardiac arrest [Unknown]
  - Angina pectoris [Unknown]
  - Electrocardiogram abnormal [Unknown]
  - Cardiac failure acute [Fatal]
  - Respiratory arrest [Unknown]
  - Respiratory rate decreased [Unknown]
  - Oropharyngeal pain [Unknown]

NARRATIVE: CASE EVENT DATE: 19940106
